FAERS Safety Report 22259579 (Version 1)
Quarter: 2023Q2

REPORT INFORMATION
  Report Type: Spontaneous
  Country: US (occurrence: None)
  Receive Date: 20230426
  Receipt Date: 20230426
  Transmission Date: 20230722
  Serious: Yes (Life-Threatening, Hospitalization, Disabling)
  Sender: FDA-Public Use
  Company Number: None

PATIENT
  Age: 68 Year
  Sex: Male
  Weight: 97.65 kg

DRUGS (1)
  1. ABIRATERONE [Suspect]
     Active Substance: ABIRATERONE
     Indication: Prostate cancer
     Dosage: FREQUENCY : DAILY;?
     Route: 048
     Dates: start: 20230403, end: 20230423

REACTIONS (8)
  - Generalised tonic-clonic seizure [None]
  - Encephalopathy [None]
  - Urinary incontinence [None]
  - Anal incontinence [None]
  - Cerebral microangiopathy [None]
  - CSF white blood cell count increased [None]
  - CSF red blood cell count positive [None]
  - CSF protein increased [None]

NARRATIVE: CASE EVENT DATE: 20230423
